FAERS Safety Report 23951597 (Version 1)
Quarter: 2024Q2

REPORT INFORMATION
  Report Type: Spontaneous
  Country: US (occurrence: US)
  Receive Date: 20240607
  Receipt Date: 20240607
  Transmission Date: 20240715
  Serious: No
  Sender: FDA-Public Use
  Company Number: US-PFIZER INC-202400185692

PATIENT

DRUGS (1)
  1. NIFEDIPINE [Suspect]
     Active Substance: NIFEDIPINE
     Indication: Blood pressure abnormal
     Dosage: UNK

REACTIONS (9)
  - Depression [Recovered/Resolved]
  - Anxiety [Unknown]
  - Constipation [Unknown]
  - Decreased appetite [Unknown]
  - Lethargy [Unknown]
  - Persistent depressive disorder [Unknown]
  - Heart rate increased [Unknown]
  - Dyspnoea [Unknown]
  - Drug ineffective [Unknown]
